FAERS Safety Report 21570650 (Version 5)
Quarter: 2023Q2

REPORT INFORMATION
  Report Type: Report from Study
  Country: CN (occurrence: CN)
  Receive Date: 20221109
  Receipt Date: 20230608
  Transmission Date: 20230721
  Serious: Yes (Hospitalization)
  Sender: FDA-Public Use
  Company Number: CN-BAYER-2022A152487

PATIENT
  Age: 84 Year
  Sex: Female
  Weight: 60 kg

DRUGS (25)
  1. RIVAROXABAN [Suspect]
     Active Substance: RIVAROXABAN
     Indication: Peripheral arterial occlusive disease
     Dosage: 2.5 MG, BID
     Route: 048
     Dates: start: 20210914, end: 20220926
  2. ASPIRIN [Suspect]
     Active Substance: ASPIRIN
     Indication: Peripheral arterial occlusive disease
     Dosage: 100 MG, QD
     Route: 048
     Dates: start: 20210902
  3. CLOPIDOGREL [Concomitant]
     Active Substance: CLOPIDOGREL BISULFATE
     Indication: Antiplatelet therapy
     Dosage: 75 MG, QD
     Dates: start: 20210902, end: 20210913
  4. ATORVASTATIN CALCIUM [Concomitant]
     Active Substance: ATORVASTATIN CALCIUM
     Dosage: 20 MG, QD
     Dates: start: 20210902, end: 20220923
  5. ATORVASTATIN CALCIUM [Concomitant]
     Active Substance: ATORVASTATIN CALCIUM
     Dosage: 20 MG, QD
     Dates: start: 20220919, end: 20220923
  6. AMLODIPINE BESYLATE [Concomitant]
     Active Substance: AMLODIPINE BESYLATE
     Dosage: 5 MG, QD
     Dates: start: 2013, end: 20210902
  7. LEVAMLODIPINE BESYLATE [Concomitant]
     Active Substance: LEVAMLODIPINE BESYLATE
     Dosage: 2.5 MG, QD
     Dates: start: 20210903
  8. DIHYDROCODEINE;PARACETAMOL [Concomitant]
     Dosage: 500 MG, QD
     Dates: start: 20210803, end: 20210910
  9. NADROPARIN CALCIUM [Concomitant]
     Active Substance: NADROPARIN CALCIUM
     Dosage: 4100 IU, QD
     Dates: start: 20210907, end: 20210910
  10. NADROPARIN CALCIUM [Concomitant]
     Active Substance: NADROPARIN CALCIUM
     Dosage: 4100 IU, QD
     Dates: start: 20221111, end: 20221111
  11. SPIRONOLACTONE [Concomitant]
     Active Substance: SPIRONOLACTONE
     Dosage: 20 MG, QD
     Dates: start: 20210908
  12. HYDROCHLOROTHIAZIDE [Concomitant]
     Active Substance: HYDROCHLOROTHIAZIDE
     Dosage: 25 MG, QD
     Dates: start: 20210909, end: 20220623
  13. LANSOPRAZOLE [Concomitant]
     Active Substance: LANSOPRAZOLE
     Dosage: 30 MG, BID
     Dates: start: 20210902, end: 20210910
  14. LANSOPRAZOLE [Concomitant]
     Active Substance: LANSOPRAZOLE
     Dosage: 30 MG, QD
     Dates: start: 20220923, end: 20220928
  15. LANSOPRAZOLE [Concomitant]
     Active Substance: LANSOPRAZOLE
     Dosage: 30 MG, QD
     Dates: start: 20221107, end: 20221114
  16. SARPOGRELATE HYDROCHLORIDE [Concomitant]
     Active Substance: SARPOGRELATE HYDROCHLORIDE
     Dosage: 100 MG, TID
     Dates: start: 20220919
  17. HERBALS [Concomitant]
     Active Substance: HERBALS
     Dosage: 40 ML, QD
     Dates: start: 20220919, end: 20220922
  18. ALPROSTADIL [Concomitant]
     Active Substance: ALPROSTADIL
     Dosage: 10 UG, QD
     Dates: start: 20220920, end: 20220922
  19. METHYLCOBALAMIN [Concomitant]
     Active Substance: METHYLCOBALAMIN
     Dosage: 500 UG, TID
     Dates: start: 20220921, end: 20220921
  20. CELECOXIB [Concomitant]
     Active Substance: CELECOXIB
     Dosage: 200 MG, BID
     Dates: start: 20220921, end: 20220921
  21. ROSUVASTATIN CALCIUM [Concomitant]
     Active Substance: ROSUVASTATIN CALCIUM
     Dosage: 10 MG
     Dates: start: 20220923
  22. NICOTINAMIDE [Concomitant]
     Active Substance: NIACINAMIDE
     Dosage: 400 MG, QD
     Dates: start: 20220923, end: 20220928
  23. LYOPHILIZED RECOMBINANT HUMAN BRAIN NATRIURETIC PEPTIDE [Concomitant]
     Dosage: 0.5 MG
     Dates: start: 20220924, end: 20220925
  24. PAPAVERINE HYDROCHLORIDE [Concomitant]
     Active Substance: PAPAVERINE HYDROCHLORIDE
     Dosage: 30 MG, QD
     Dates: start: 20221107, end: 20221114
  25. COMPOUND SODIUM CHLORIDE [CALCIUM CHLORIDE;POTASSIUM CHLORIDE;SODIUM C [Concomitant]
     Dosage: 500 ML
     Dates: start: 20221111, end: 20221111

REACTIONS (2)
  - Arteriosclerosis coronary artery [Recovered/Resolved]
  - Peripheral arterial occlusive disease [Recovered/Resolved]

NARRATIVE: CASE EVENT DATE: 20220919
